FAERS Safety Report 17705516 (Version 1)
Quarter: 2020Q2

REPORT INFORMATION
  Report Type: Report from Study
  Country: MX (occurrence: MX)
  Receive Date: 20200424
  Receipt Date: 20200424
  Transmission Date: 20200714
  Serious: Yes (Other)
  Sender: FDA-Public Use
  Company Number: NVSC2020MX091392

PATIENT
  Age: 64 Year
  Sex: Male
  Weight: 75 kg

DRUGS (8)
  1. INSULIN [Concomitant]
     Active Substance: INSULIN NOS
     Dosage: 10 U, QD (EVERY DAY IN MORNING)
     Route: 065
  2. HYDROCHLOROTHIAZIDE. [Concomitant]
     Active Substance: HYDROCHLOROTHIAZIDE
     Indication: PRODUCT USED FOR UNKNOWN INDICATION
     Dosage: 12.5 MG, Q12H
     Route: 048
  3. INSULIN [Concomitant]
     Active Substance: INSULIN NOS
     Indication: DIABETES MELLITUS
     Dosage: 5 U, Q12H
     Route: 065
  4. LUCENTIS [Suspect]
     Active Substance: RANIBIZUMAB
     Dosage: 1 DF, QMO
     Route: 031
     Dates: start: 20200331
  5. ASPIRIN. [Concomitant]
     Active Substance: ASPIRIN
     Indication: PRODUCT USED FOR UNKNOWN INDICATION
     Dosage: 100 MG, Q24H
     Route: 048
  6. LUCENTIS [Suspect]
     Active Substance: RANIBIZUMAB
     Indication: DIABETIC RETINAL OEDEMA
     Dosage: 1 DF, QMO (0.5/0.05 MG/ML)
     Route: 031
     Dates: start: 201911
  7. METFORMIN [Suspect]
     Active Substance: METFORMIN HYDROCHLORIDE
     Indication: PRODUCT USED FOR UNKNOWN INDICATION
     Dosage: 500 MG, Q12H
     Route: 048
  8. LOSARTAN. [Concomitant]
     Active Substance: LOSARTAN
     Indication: PRODUCT USED FOR UNKNOWN INDICATION
     Dosage: 50 MG, Q12H
     Route: 048

REACTIONS (2)
  - Conjunctival haemorrhage [Recovering/Resolving]
  - Product administration error [Unknown]

NARRATIVE: CASE EVENT DATE: 20200331
